FAERS Safety Report 9392767 (Version 2)
Quarter: 2014Q2

REPORT INFORMATION
  Report Type: Spontaneous
  Country: US (occurrence: US)
  Receive Date: 20130710
  Receipt Date: 20140415
  Transmission Date: 20141212
  Serious: No
  Sender: FDA-Public Use
  Company Number: US-009507513-1307USA003434

PATIENT
  Sex: Male

DRUGS (2)
  1. PROPECIA [Suspect]
     Indication: ALOPECIA
     Dosage: 1 MG, QD
     Route: 048
     Dates: start: 20090413, end: 20120825
  2. PROPECIA [Suspect]
     Indication: ANDROGENETIC ALOPECIA

REACTIONS (12)
  - Blood testosterone decreased [Unknown]
  - Erectile dysfunction [Unknown]
  - Sexual dysfunction [Unknown]
  - Fatigue [Unknown]
  - Depression [Unknown]
  - Anxiety [Not Recovered/Not Resolved]
  - Intervertebral disc disorder [Unknown]
  - Tonsillectomy [Unknown]
  - Hypogonadism [Unknown]
  - Attention deficit/hyperactivity disorder [Unknown]
  - Fibromyalgia [Unknown]
  - Rhinitis allergic [Unknown]
